FAERS Safety Report 23810147 (Version 7)
Quarter: 2024Q3

REPORT INFORMATION
  Report Type: Report from Study
  Country: CN (occurrence: CN)
  Receive Date: 20240502
  Receipt Date: 20240930
  Transmission Date: 20241017
  Serious: Yes (Hospitalization)
  Sender: TEVA
  Company Number: CN-TEVA-VS-3188480

PATIENT
  Age: 67 Year
  Sex: Female
  Weight: 48.2 kg

DRUGS (16)
  1. BENDAMUSTINE [Suspect]
     Active Substance: BENDAMUSTINE
     Indication: Lymphocytic leukaemia
     Dosage: TIME INTERVAL: CYCLICAL: HYDROCHLORIDE FOR INJECTION
     Route: 042
     Dates: start: 20240201, end: 20240329
  2. ETHAMSYLATE [Concomitant]
     Active Substance: ETHAMSYLATE
     Indication: Product used for unknown indication
     Dates: start: 20240327, end: 20240507
  3. ESOMEPRAZOLE [Concomitant]
     Active Substance: ESOMEPRAZOLE
     Indication: Product used for unknown indication
     Dates: start: 20240327, end: 20240507
  4. CAFFEIC ACID [Concomitant]
     Active Substance: CAFFEIC ACID
     Indication: Neutrophil count decreased
     Dates: start: 20240328, end: 20240507
  5. CALCIUM GLUCONATE [Concomitant]
     Active Substance: CALCIUM GLUCONATE
     Indication: Product used for unknown indication
     Dates: start: 20240328, end: 20240401
  6. PLATELETS [Concomitant]
     Active Substance: HUMAN PLATELET, ALLOGENIC
     Indication: Product used for unknown indication
     Dates: start: 20240328, end: 20240504
  7. DIPHENHYDRAMINE HYDROCHLORIDE [Concomitant]
     Active Substance: DIPHENHYDRAMINE HYDROCHLORIDE
     Indication: Product used for unknown indication
     Dates: start: 20240329, end: 20240329
  8. DEXAMETHASONE SODIUM PHOSPHATE [Concomitant]
     Active Substance: DEXAMETHASONE PHOSPHATE\DEXAMETHASONE SODIUM PHOSPHATE
     Indication: Antiallergic therapy
     Dates: start: 20240329, end: 20240401
  9. FUROSEMIDE [Concomitant]
     Active Substance: FUROSEMIDE
     Indication: Polyuria
     Dates: start: 20240329, end: 20240330
  10. RECOMBINANT HUMAN THROMBOPOIETIN [Concomitant]
     Active Substance: RECOMBINANT HUMAN THROMBOPOIETIN
     Indication: Thrombocytopenia
     Dates: start: 20240330, end: 20240418
  11. OSELTAMIVIR PHOSPHATE [Concomitant]
     Active Substance: OSELTAMIVIR PHOSPHATE
     Indication: Product used for unknown indication
     Dates: start: 20240331, end: 20240404
  12. RITUXIMAB [Suspect]
     Active Substance: RITUXIMAB
     Indication: Lymphocytic leukaemia
     Dosage: TIME INTERVAL: CYCLICAL
     Route: 042
     Dates: start: 20240201, end: 20240330
  13. CEFTRIAXONE SODIUM [Concomitant]
     Active Substance: CEFTRIAXONE SODIUM
     Indication: Product used for unknown indication
     Dates: start: 20240401, end: 20240403
  14. LEVOFLOXACIN [Concomitant]
     Active Substance: LEVOFLOXACIN
     Indication: Pyrexia
     Dates: start: 20240401, end: 20240403
  15. Red blood cells Leucocyte depleted [Concomitant]
     Indication: Product used for unknown indication
     Dates: start: 20240401
  16. DEXTROSE\SODIUM CHLORIDE [Concomitant]
     Active Substance: DEXTROSE\SODIUM CHLORIDE
     Indication: Product used for unknown indication
     Dosage: FLUID INFUSION
     Dates: start: 20240401, end: 20240403

REACTIONS (3)
  - Myelosuppression [Recovered/Resolved]
  - Neutrophil count decreased [Recovered/Resolved]
  - Anaemia [Not Recovered/Not Resolved]

NARRATIVE: CASE EVENT DATE: 20240403
